FAERS Safety Report 10049411 (Version 1)
Quarter: 2014Q2

REPORT INFORMATION
  Report Type: Spontaneous
  Country: IT (occurrence: IT)
  Receive Date: 20140401
  Receipt Date: 20140401
  Transmission Date: 20141212
  Serious: Yes (Hospitalization, Other)
  Sender: FDA-Public Use
  Company Number: IT-ASTRAZENECA-2014SE21115

PATIENT
  Age: 20342 Day
  Sex: Male

DRUGS (6)
  1. SEROQUEL [Suspect]
     Indication: DRUG ABUSE
     Route: 048
     Dates: start: 20140309, end: 20140309
  2. SEROQUEL [Suspect]
     Indication: DRUG ABUSE
     Route: 048
     Dates: start: 20140309, end: 20140309
  3. SEROQUEL [Suspect]
     Indication: DRUG ABUSE
     Route: 048
  4. EN [Suspect]
     Indication: DRUG ABUSE
     Dosage: 80 ML, 1G/ML
     Route: 048
     Dates: start: 20140309, end: 20140309
  5. DEPAKIN [Suspect]
     Indication: DRUG ABUSE
     Route: 048
     Dates: start: 20140309, end: 20140309
  6. DEPAKIN [Suspect]
     Indication: DRUG ABUSE
     Route: 048

REACTIONS (8)
  - Self injurious behaviour [Unknown]
  - Drug abuse [Unknown]
  - Agitation [Recovering/Resolving]
  - Confabulation [Recovering/Resolving]
  - Disorientation [Recovering/Resolving]
  - Sopor [Recovering/Resolving]
  - Dysarthria [Recovering/Resolving]
  - Restlessness [Recovering/Resolving]
